FAERS Safety Report 19404167 (Version 1)
Quarter: 2021Q2

REPORT INFORMATION
  Report Type: Spontaneous
  Country: US (occurrence: US)
  Receive Date: 20210610
  Receipt Date: 20210610
  Transmission Date: 20210717
  Serious: No
  Sender: FDA-Public Use
  Company Number: None

PATIENT
  Age: 72 Year
  Sex: Male

DRUGS (1)
  1. REVLIMID [Suspect]
     Active Substance: LENALIDOMIDE
     Indication: PARAPROTEINAEMIA
     Route: 048
     Dates: start: 20181109, end: 20210107

REACTIONS (2)
  - Neutropenia [None]
  - Transplant [None]

NARRATIVE: CASE EVENT DATE: 20210107
